FAERS Safety Report 7644925-2 (Version None)
Quarter: 2011Q3

REPORT INFORMATION
  Report Type: 
  Country: None (occurrence: None)
  Receive Date: 20110729
  Receipt Date: 20110725
  Transmission Date: 20111222
  Serious: Yes (Hospitalization)
  Sender: FDA-Public Use
  Company Number: US-GLAXOSMITHKLINE-A0834570A

PATIENT
  Age: 70 Year
  Sex: Male

DRUGS (5)
  1. CELLCEPT [Concomitant]
  2. NEORAL [Concomitant]
  3. COREG CR [Suspect]
     Indication: HYPERTENSION
     Route: 048
     Dates: start: 20060101
  4. CARVEDILOL [Suspect]
     Indication: HYPERTENSION
     Dosage: 6.5MG TWICE PER DAY
     Route: 048
     Dates: start: 19970101, end: 19970101
  5. AVAPRO [Concomitant]

REACTIONS (2)
  - DRUG INEFFECTIVE [None]
  - HERNIA REPAIR [None]
